FAERS Safety Report 5396808-9 (Version None)
Quarter: 2007Q3

REPORT INFORMATION
  Report Type: 
  Country: None (occurrence: None)
  Receive Date: 20070725
  Receipt Date: 20060901
  Transmission Date: 20080115
  Serious: No
  Sender: FDA-Public Use
  Company Number: US-AMGEN-KDL192308

PATIENT
  Sex: Male
  Weight: 69.9 kg

DRUGS (1)
  1. PROCRIT [Suspect]
     Indication: MYELODYSPLASTIC SYNDROME
     Dates: start: 20060801

REACTIONS (3)
  - GAIT DISTURBANCE [None]
  - PELVIC PAIN [None]
  - WEIGHT DECREASED [None]
